FAERS Safety Report 5677019-6 (Version None)
Quarter: 2008Q1

REPORT INFORMATION
  Report Type: 
  Country: None (occurrence: None)
  Receive Date: 20080324
  Receipt Date: 20080310
  Transmission Date: 20080703
  Serious: Yes (Other)
  Sender: FDA-Public Use
  Company Number: FR-GENENTECH-244875

PATIENT
  Sex: Male

DRUGS (3)
  1. XOLAIR [Suspect]
     Indication: ASTHMA
     Dosage: 150 MG, UNK
     Dates: start: 20050801
  2. XOLAIR [Suspect]
     Dosage: 300 MG, UNK
  3. AEROSOL UNSPECIFIED [Concomitant]
     Indication: ASTHMA

REACTIONS (1)
  - HAEMATURIA [None]
